FAERS Safety Report 8304723-3 (Version None)
Quarter: 2012Q2

REPORT INFORMATION
  Report Type: 
  Country: None (occurrence: None)
  Receive Date: 20120423
  Receipt Date: 20120409
  Transmission Date: 20120825
  Serious: Yes (Hospitalization, Other)
  Sender: FDA-Public Use
  Company Number: JP-ROCHE-1053531

PATIENT
  Age: 57 Year
  Sex: Male
  Weight: 71 kg

DRUGS (6)
  1. ACETAMINOPHEN [Suspect]
     Indication: PYREXIA
     Dosage: TAKEN AS NEEDED.
     Route: 048
     Dates: start: 20120208
  2. NYROZIN [Concomitant]
     Dosage: DOSAGE IS UNCERTAIN.
     Route: 042
  3. GASMOTIN [Concomitant]
     Dosage: DOSAGE IS UNCERTAIN.
     Route: 048
  4. TAMIFLU [Suspect]
     Indication: INFLUENZA
     Route: 048
     Dates: start: 20120208, end: 20120208
  5. ALLOPURINOL [Concomitant]
     Dosage: DOSAGE IS UNCERTAIN.
     Route: 048
  6. TAMIFLU [Suspect]
     Dosage: PATIENT SELF-DISCONTINUED
     Route: 048
     Dates: start: 20120209, end: 20120209

REACTIONS (7)
  - HYPERTENSION [None]
  - HEPATIC ENZYME INCREASED [None]
  - RENAL FAILURE ACUTE [None]
  - URETERAL NECROSIS [None]
  - RHABDOMYOLYSIS [None]
  - GALLBLADDER DISORDER [None]
  - TREMOR [None]
